FAERS Safety Report 10207909 (Version 1)
Quarter: 2014Q2

REPORT INFORMATION
  Report Type: Spontaneous
  Country: US (occurrence: US)
  Receive Date: 20140530
  Receipt Date: 20140530
  Transmission Date: 20141212
  Serious: No
  Sender: FDA-Public Use
  Company Number: US-GLAXOSMITHKLINE-A1064438A

PATIENT
  Age: 63 Year
  Sex: Female

DRUGS (4)
  1. VENTOLIN [Suspect]
     Indication: ASTHMA
     Dosage: 90MCG UNKNOWN
     Route: 048
     Dates: start: 20121115
  2. XANAX [Suspect]
     Indication: PRODUCT USED FOR UNKNOWN INDICATION
     Route: 065
  3. TRAZODONE [Suspect]
     Indication: PRODUCT USED FOR UNKNOWN INDICATION
     Route: 065
  4. MORPHINE INJECTION [Suspect]
     Indication: SPINAL PAIN
     Route: 065

REACTIONS (5)
  - Intervertebral disc protrusion [Unknown]
  - Nerve compression [Unknown]
  - Dyspnoea [Unknown]
  - Emotional disorder [Unknown]
  - Tooth loss [Unknown]
